FAERS Safety Report 10038892 (Version 1)
Quarter: 2014Q1

REPORT INFORMATION
  Report Type: Spontaneous
  Country: ES (occurrence: ES)
  Receive Date: 20140326
  Receipt Date: 20140326
  Transmission Date: 20141002
  Serious: Yes (Other)
  Sender: FDA-Public Use
  Company Number: ES-GLAXOSMITHKLINE-B0979896A

PATIENT
  Age: 0 Day
  Sex: Female
  Weight: 70 kg

DRUGS (2)
  1. AVAMYS [Suspect]
     Indication: PRODUCT USED FOR UNKNOWN INDICATION
     Route: 045
     Dates: start: 20140203, end: 20140217
  2. EBASTINA [Suspect]
     Indication: RESPIRATORY TRACT INFECTION
     Dosage: 20MG PER DAY
     Route: 048
     Dates: start: 20140203, end: 20140217

REACTIONS (1)
  - Neutropenia [Recovered/Resolved]
